FAERS Safety Report 14958264 (Version 3)
Quarter: 2018Q3

REPORT INFORMATION
  Report Type: Spontaneous
  Country: ES (occurrence: ES)
  Receive Date: 20180531
  Receipt Date: 20180920
  Transmission Date: 20181010
  Serious: Yes (Other)
  Sender: FDA-Public Use
  Company Number: ES-SAMSUNG BIOEPIS-SB-2018-06612

PATIENT
  Age: 60 Year
  Sex: Male

DRUGS (14)
  1. FILGRASTIM [Suspect]
     Active Substance: FILGRASTIM
     Indication: INFLAMMATORY BOWEL DISEASE
     Dosage: UNKNOWN
     Route: 065
  2. ADALIMUMAB [Suspect]
     Active Substance: ADALIMUMAB
     Indication: INFLAMMATORY BOWEL DISEASE
     Route: 065
     Dates: start: 201410
  3. METHYLPREDNISOLONE SODIUM SUCCINATE. [Suspect]
     Active Substance: METHYLPREDNISOLONE SODIUM SUCCINATE
     Indication: INFLAMMATORY BOWEL DISEASE
     Dosage: UNKNOWN
     Route: 065
  4. INFLIXIMAB [Suspect]
     Active Substance: INFLIXIMAB
     Indication: IMMUNODEFICIENCY COMMON VARIABLE
     Dosage: UNKNOWN
     Route: 042
  5. INFLIXIMAB [Suspect]
     Active Substance: INFLIXIMAB
     Indication: GASTROINTESTINAL FISTULA
  6. MESALAZINE [Suspect]
     Active Substance: MESALAMINE
     Indication: INFLAMMATORY BOWEL DISEASE
     Dosage: UNKNOWN
     Route: 065
  7. USTEKINUMAB [Concomitant]
     Active Substance: USTEKINUMAB
     Indication: IMMUNODEFICIENCY COMMON VARIABLE
     Dosage: 180 MG LOADING DOSE
     Route: 058
     Dates: start: 2014
  8. USTEKINUMAB [Concomitant]
     Active Substance: USTEKINUMAB
     Indication: INFLAMMATORY BOWEL DISEASE
  9. USTEKINUMAB [Concomitant]
     Active Substance: USTEKINUMAB
     Indication: SMALL INTESTINAL OBSTRUCTION
  10. INFLIXIMAB [Suspect]
     Active Substance: INFLIXIMAB
     Indication: INFLAMMATORY BOWEL DISEASE
     Dosage: UNKNOWN DOSE
  11. BUDESONIDE. [Suspect]
     Active Substance: BUDESONIDE
     Indication: INFLAMMATORY BOWEL DISEASE
     Dosage: UNKNOWN
     Route: 065
  12. IMUREL [Suspect]
     Active Substance: AZATHIOPRINE SODIUM
     Indication: INFLAMMATORY BOWEL DISEASE
     Dosage: UNKNOWN
     Route: 065
  13. USTEKINUMAB [Concomitant]
     Active Substance: USTEKINUMAB
     Indication: FISTULA
  14. USTEKINUMAB [Concomitant]
     Active Substance: USTEKINUMAB
     Indication: PERFORATION

REACTIONS (9)
  - Cytomegalovirus enteritis [Recovered/Resolved]
  - Intestinal perforation [Recovered/Resolved]
  - Small intestinal obstruction [Recovered/Resolved]
  - Campylobacter gastroenteritis [Recovered/Resolved]
  - Periumbilical abscess [Recovered/Resolved]
  - Product use in unapproved indication [Unknown]
  - Gastroenteritis clostridial [Recovered/Resolved]
  - Intestinal fistula [Recovered/Resolved]
  - Drug ineffective [Unknown]

NARRATIVE: CASE EVENT DATE: 201410
